FAERS Safety Report 6801777-8 (Version None)
Quarter: 2010Q2

REPORT INFORMATION
  Report Type: 
  Country: None (occurrence: None)
  Receive Date: 20100629
  Receipt Date: 20100616
  Transmission Date: 20101027
  Serious: Yes (Hospitalization)
  Sender: FDA-Public Use
  Company Number: PHHY2010US28932

PATIENT
  Sex: Female

DRUGS (4)
  1. GLEEVEC [Suspect]
     Indication: ACUTE LYMPHOCYTIC LEUKAEMIA
     Dosage: 400 MG, QD
     Route: 048
     Dates: start: 20090501
  2. ANTINEOPLASTIC AGENTS [Concomitant]
  3. METHOTREXATE [Concomitant]
     Indication: LEUKAEMIA
  4. IMATINIB [Concomitant]
     Indication: LEUKAEMIA
     Dosage: 400 MG, UNK

REACTIONS (3)
  - ASTHMA [None]
  - BRONCHITIS [None]
  - PANCYTOPENIA [None]
